FAERS Safety Report 9536840 (Version 2)
Quarter: 2013Q3

REPORT INFORMATION
  Report Type: Spontaneous
  Country: US (occurrence: US)
  Receive Date: 20130919
  Receipt Date: 20130930
  Transmission Date: 20140515
  Serious: Yes (Other)
  Sender: FDA-Public Use
  Company Number: US-JNJFOC-20130908330

PATIENT
  Sex: Male
  Weight: 163.3 kg

DRUGS (4)
  1. TRAMADOL [Suspect]
     Indication: PAIN
     Route: 065
     Dates: start: 2011, end: 2011
  2. CYMBALTA [Concomitant]
     Indication: PAIN
     Route: 048
     Dates: start: 2008
  3. CARVEDILOL [Concomitant]
     Indication: HYPERTENSION
     Route: 065
  4. MS CONTIN [Concomitant]
     Indication: PAIN
     Route: 048

REACTIONS (3)
  - Disability [Not Recovered/Not Resolved]
  - Headache [Recovered/Resolved]
  - Drug ineffective [Unknown]
